FAERS Safety Report 5896129-1 (Version None)
Quarter: 2008Q3

REPORT INFORMATION
  Report Type: 
  Country: None (occurrence: None)
  Receive Date: 20080924
  Receipt Date: 20070410
  Transmission Date: 20090109
  Serious: Yes (Other)
  Sender: FDA-Public Use
  Company Number: US-ASTRAZENECA-2007UW02121

PATIENT
  Age: 43 Year
  Sex: Male
  Weight: 86.2 kg

DRUGS (6)
  1. SEROQUEL [Suspect]
     Indication: SCHIZOPHRENIA
     Dosage: 50 TO 400 MG
     Route: 048
     Dates: start: 20000610, end: 20061101
  2. ABILIFY [Concomitant]
     Dosage: 15 TO 30 MG
     Dates: start: 20040901
  3. HALDOL [Concomitant]
     Dates: start: 19800101
  4. RISPERDAL [Concomitant]
     Dosage: 2 TO 4 MG
     Dates: start: 20000101, end: 20010101
  5. ZYPREXA [Concomitant]
     Dates: start: 20000501
  6. NAVANE [Concomitant]
     Dates: start: 19860101

REACTIONS (13)
  - ABDOMINAL PAIN UPPER [None]
  - ANORECTAL DISCOMFORT [None]
  - ARTHRITIS [None]
  - BLOOD CHOLESTEROL INCREASED [None]
  - DYSPEPSIA [None]
  - ERECTILE DYSFUNCTION [None]
  - HAEMORRHOIDS [None]
  - INSOMNIA [None]
  - MUSCULOSKELETAL PAIN [None]
  - NECK PAIN [None]
  - RESPIRATORY TRACT INFECTION [None]
  - SUICIDAL IDEATION [None]
  - TYPE 2 DIABETES MELLITUS [None]
